FAERS Safety Report 14874303 (Version 2)
Quarter: 2018Q2

REPORT INFORMATION
  Report Type: Spontaneous
  Country: MX (occurrence: MX)
  Receive Date: 20180510
  Receipt Date: 20180510
  Transmission Date: 20180711
  Serious: Yes (Other)
  Sender: FDA-Public Use
  Company Number: MX-009507513-1805MEX002391

PATIENT

DRUGS (1)
  1. KEYTRUDA [Suspect]
     Active Substance: PEMBROLIZUMAB
     Indication: LUNG NEOPLASM MALIGNANT
     Dosage: (STRENGTH: 100 MG, 4 ML, 10 ML VIAL)

REACTIONS (3)
  - Neutropenia [Unknown]
  - Off label use [Unknown]
  - Rash [Unknown]
